FAERS Safety Report 7622613-6 (Version None)
Quarter: 2011Q3

REPORT INFORMATION
  Report Type: 
  Country: None (occurrence: None)
  Receive Date: 20110712
  Receipt Date: 20110627
  Transmission Date: 20111222
  Serious: Yes (Hospitalization)
  Sender: FDA-Public Use
  Company Number: 2011NA000053

PATIENT
  Age: 64 Year
  Sex: Female

DRUGS (1)
  1. DICLOFENAC SODIUM [Suspect]
     Indication: OSTEOARTHRITIS
     Dosage: 50 MG;TID;

REACTIONS (10)
  - DIARRHOEA [None]
  - GASTRIC ULCER [None]
  - ABDOMINAL PAIN LOWER [None]
  - GASTRITIS [None]
  - COLONIC STENOSIS [None]
  - FIBROSIS [None]
  - ABDOMINAL PAIN UPPER [None]
  - HYPOCHROMIC ANAEMIA [None]
  - LYMPHADENOPATHY [None]
  - WEIGHT DECREASED [None]
